FAERS Safety Report 20104835 (Version 3)
Quarter: 2022Q1

REPORT INFORMATION
  Report Type: Report from Study
  Country: MX (occurrence: MX)
  Receive Date: 20211124
  Receipt Date: 20220115
  Transmission Date: 20220423
  Serious: Yes (Other)
  Sender: FDA-Public Use
  Company Number: MX-NOVARTISPH-NVSC2021MX228238

PATIENT
  Sex: Female

DRUGS (1)
  1. GILENYA [Suspect]
     Active Substance: FINGOLIMOD HYDROCHLORIDE
     Indication: Multiple sclerosis
     Dosage: 0.5 MG, QD
     Route: 048
     Dates: start: 201601

REACTIONS (9)
  - Intentional self-injury [Unknown]
  - Mood swings [Not Recovered/Not Resolved]
  - Anger [Recovering/Resolving]
  - Somnolence [Recovering/Resolving]
  - Depression [Not Recovered/Not Resolved]
  - Pseudologia [Unknown]
  - Memory impairment [Not Recovered/Not Resolved]
  - Impulsive behaviour [Unknown]
  - Insomnia [Not Recovered/Not Resolved]

NARRATIVE: CASE EVENT DATE: 20210101
